FAERS Safety Report 18005246 (Version 1)
Quarter: 2020Q3

REPORT INFORMATION
  Report Type: Report from Study
  Country: IT (occurrence: IT)
  Receive Date: 20200709
  Receipt Date: 20200709
  Transmission Date: 20201103
  Serious: Yes (Hospitalization)
  Sender: FDA-Public Use
  Company Number: IT-TAKEDA-2020TEU006229

PATIENT
  Age: 76 Year
  Sex: Female

DRUGS (5)
  1. PIOGLITAZONE, METFORMIN [Suspect]
     Active Substance: METFORMIN HYDROCHLORIDE\PIOGLITAZONE HYDROCHLORIDE
     Indication: DIABETES MELLITUS
     Dosage: UNK UNK, QD
     Route: 048
     Dates: start: 20191128, end: 20200117
  2. TRULICITY [Concomitant]
     Active Substance: DULAGLUTIDE
     Dosage: UNK
     Route: 058
     Dates: start: 20191128, end: 20191128
  3. AMLODIPINE W/RAMIPRIL [Concomitant]
     Active Substance: AMLODIPINE\RAMIPRIL
     Dosage: UNK
     Route: 048
  4. LANSOPRAZOLO [Concomitant]
     Active Substance: LANSOPRAZOLE
     Dosage: UNK
     Route: 048
  5. CLOPIDOGREL KRKA                   /01220705/ [Concomitant]
     Active Substance: CLOPIDOGREL HYDROCHLORIDE
     Dosage: UNK
     Route: 048

REACTIONS (2)
  - Abdominal pain [Recovered/Resolved]
  - Diarrhoea [Recovered/Resolved]

NARRATIVE: CASE EVENT DATE: 20200117
